FAERS Safety Report 7019601-X (Version None)
Quarter: 2010Q3

REPORT INFORMATION
  Report Type: 
  Country: None (occurrence: None)
  Receive Date: 20100928
  Receipt Date: 20100928
  Transmission Date: 20110219
  Serious: Yes (Hospitalization)
  Sender: FDA-Public Use
  Company Number: None

PATIENT
  Age: 69 Year
  Sex: Male
  Weight: 73.5 kg

DRUGS (2)
  1. AMIODARONE HCL [Suspect]
     Indication: CORONARY ARTERY BYPASS
     Dosage: 200 MG BID PO
     Route: 048
     Dates: start: 20100526, end: 20100528
  2. DIGOXIN [Suspect]
     Indication: CORONARY ARTERY BYPASS
     Dosage: 0.125 MG EVERY DAY PO
     Route: 048
     Dates: start: 20100526, end: 20100528

REACTIONS (5)
  - BRADYCARDIA [None]
  - NAUSEA [None]
  - SINUS BRADYCARDIA [None]
  - SYNCOPE [None]
  - VOMITING [None]
